FAERS Safety Report 4298971-X (Version None)
Quarter: 2004Q1

REPORT INFORMATION
  Report Type: 
  Country: None (occurrence: None)
  Receive Date: 20040217
  Receipt Date: 20040205
  Transmission Date: 20041129
  Serious: Yes (Hospitalization)
  Sender: FDA-Public Use
  Company Number: LTI2004A00009

PATIENT
  Age: 65 Year
  Sex: Male

DRUGS (9)
  1. ACTOS [Suspect]
     Indication: DIABETES MELLITUS NON-INSULIN-DEPENDENT
     Dosage: 30 MG (30 MG, 1 IN 1 D),ORAL
     Route: 048
     Dates: start: 20030916, end: 20031215
  2. STAGID (METFORMIN EMBONATE) [Concomitant]
  3. MONICOR (ISOSORBIDE MONONITRATE) [Concomitant]
  4. DIGOXIN [Concomitant]
  5. LASIX [Concomitant]
  6. ALDACTONE [Concomitant]
  7. CORDARONE [Concomitant]
  8. ALLOPURINOL [Concomitant]
  9. PRAVASTATIN SODIUM [Concomitant]

REACTIONS (11)
  - ACUTE PULMONARY OEDEMA [None]
  - AMYOTROPHY [None]
  - ATRIOVENTRICULAR BLOCK SECOND DEGREE [None]
  - BUNDLE BRANCH BLOCK LEFT [None]
  - CARDIAC FAILURE [None]
  - CARDIOMEGALY [None]
  - CONGESTIVE CARDIOMYOPATHY [None]
  - DYSPNOEA EXERTIONAL [None]
  - ELECTROCARDIOGRAM T WAVE ABNORMAL [None]
  - REFLEX SYMPATHETIC DYSTROPHY [None]
  - VENTRICULAR HYPERTROPHY [None]
